FAERS Safety Report 7078869-4 (Version None)
Quarter: 2010Q4

REPORT INFORMATION
  Report Type: 
  Country: None (occurrence: None)
  Receive Date: 20101021
  Receipt Date: 20101013
  Transmission Date: 20110411
  Serious: Yes (Hospitalization, Other)
  Sender: FDA-Public Use
  Company Number: 020207

PATIENT
  Sex: Female
  Weight: 51.4 kg

DRUGS (10)
  1. KEPPRA [Suspect]
     Indication: EPILEPSY
     Dosage: (500 MG BID ORAL), (2000 MG ORAL), (1000 MG ORAL), (ORAL),
     Route: 048
     Dates: start: 20070523, end: 20070606
  2. KEPPRA [Suspect]
     Indication: EPILEPSY
     Dosage: (500 MG BID ORAL), (2000 MG ORAL), (1000 MG ORAL), (ORAL),
     Route: 048
     Dates: start: 20070606, end: 20070925
  3. KEPPRA [Suspect]
     Indication: EPILEPSY
     Dosage: (500 MG BID ORAL), (2000 MG ORAL), (1000 MG ORAL), (ORAL),
     Route: 048
     Dates: start: 20070926, end: 20090909
  4. KEPPRA [Suspect]
     Indication: EPILEPSY
     Dosage: (500 MG BID ORAL), (2000 MG ORAL), (1000 MG ORAL), (ORAL),
     Route: 048
     Dates: start: 20090914, end: 20100927
  5. KEPPRA [Suspect]
     Indication: EPILEPSY
     Dosage: (500 MG BID ORAL), (2000 MG ORAL), (1000 MG ORAL), (ORAL),
     Route: 048
     Dates: start: 20100927
  6. VALPROIC ACID [Concomitant]
  7. CARBAMAZEPINE [Concomitant]
  8. PHENOBARBITAL [Concomitant]
  9. NARON ACE [Concomitant]
  10. ALOSENN /00476901/ [Concomitant]

REACTIONS (12)
  - AGITATION [None]
  - CHEST PAIN [None]
  - DEPRESSION [None]
  - FRUSTRATION [None]
  - INTENTIONAL SELF-INJURY [None]
  - LOGORRHOEA [None]
  - MANIA [None]
  - MENTAL DISORDER [None]
  - MOOD ALTERED [None]
  - RESTLESSNESS [None]
  - SENSE OF OPPRESSION [None]
  - VOMITING [None]
